FAERS Safety Report 8619006 (Version 3)
Quarter: 2012Q4

REPORT INFORMATION
  Report Type: 
  Country: DE (occurrence: DE)
  Receive Date: 20120618
  Receipt Date: 20121004
  Transmission Date: 20130627
  Serious: Yes (Other)
  Sender: FDA-Public Use
  Company Number: PHHY2012DE050768

PATIENT
  Sex: Male

DRUGS (2)
  1. SANDOSTATIN [Suspect]
     Indication: NEUROENDOCRINE TUMOUR
     Dosage: 50 ug, Q12H
     Dates: start: 2005, end: 2008
  2. SANDOSTATIN [Suspect]
     Dosage: UNK UKN, UNK

REACTIONS (9)
  - Blood glucose increased [Unknown]
  - Pyrexia [Not Recovered/Not Resolved]
  - Gingival bleeding [Unknown]
  - Reflux gastritis [Not Recovered/Not Resolved]
  - Drug intolerance [Unknown]
  - Gingival inflammation [Unknown]
  - Blood chromogranin A increased [Unknown]
  - Diarrhoea [Recovered/Resolved]
  - Vomiting [Not Recovered/Not Resolved]
